FAERS Safety Report 9820077 (Version 1)
Quarter: 2013Q4

REPORT INFORMATION
  Report Type: Spontaneous
  Country: US (occurrence: None)
  Receive Date: 20131223
  Receipt Date: 20131223
  Transmission Date: 20140711
  Serious: No
  Sender: FDA-Public Use
  Company Number: 221228

PATIENT
  Age: 65 Year
  Sex: Female

DRUGS (4)
  1. PICATO [Suspect]
     Indication: ACTINIC KERATOSIS
     Route: 061
     Dates: start: 20130407
  2. NEXIUM (ESOMEPRAZOLE MAGNESIUM) (20 MG) [Concomitant]
  3. CRESTOR (ROSUVASTATIN)(5 MG) [Concomitant]
  4. MOBIC (MELOXICAM) [Concomitant]

REACTIONS (2)
  - Application site erythema [None]
  - Application site pruritus [None]
